FAERS Safety Report 16850697 (Version 1)
Quarter: 2019Q3

REPORT INFORMATION
  Report Type: Spontaneous
  Country: US (occurrence: US)
  Receive Date: 20190925
  Receipt Date: 20190925
  Transmission Date: 20191005
  Serious: No
  Sender: FDA-Public Use
  Company Number: US-THERAPEUTICSMD-2019TMD02712

PATIENT
  Age: 68 Year
  Sex: Female
  Weight: 72.56 kg

DRUGS (9)
  1. IMVEXXY [Suspect]
     Active Substance: ESTRADIOL
     Indication: NOCTURIA
     Dosage: 10 ?G, 1X/DAY DURING DAY
     Route: 067
     Dates: start: 20190712, end: 20190726
  2. PANTOPRAZOLE [Concomitant]
     Active Substance: PANTOPRAZOLE
  3. METFORMIN [Concomitant]
     Active Substance: METFORMIN HYDROCHLORIDE
  4. TELMISARTAN. [Concomitant]
     Active Substance: TELMISARTAN
  5. AMLODIPINE [Concomitant]
     Active Substance: AMLODIPINE BESYLATE
  6. IMVEXXY [Suspect]
     Active Substance: ESTRADIOL
     Indication: URINARY TRACT INFECTION
     Dosage: 10 ?G, 2X/WEEK DURING DAY
     Route: 067
     Dates: start: 20190727, end: 20190813
  7. JANUVIA [Concomitant]
     Active Substance: SITAGLIPTIN PHOSPHATE
  8. UNSPECIFIED DIABETIC MEDICATION [Suspect]
     Active Substance: UNSPECIFIED INGREDIENT
     Indication: DIABETES MELLITUS
     Dosage: UNK
  9. METOPROLOL. [Concomitant]
     Active Substance: METOPROLOL

REACTIONS (9)
  - Decreased appetite [Not Recovered/Not Resolved]
  - Flatulence [Recovering/Resolving]
  - Nausea [Recovering/Resolving]
  - Off label use [Recovered/Resolved]
  - Gallbladder disorder [Unknown]
  - Abdominal discomfort [Recovering/Resolving]
  - Vomiting [Recovered/Resolved]
  - Abdominal pain [Recovering/Resolving]
  - Dyspepsia [Recovering/Resolving]

NARRATIVE: CASE EVENT DATE: 2019
